FAERS Safety Report 6007297-5 (Version None)
Quarter: 2008Q4

REPORT INFORMATION
  Report Type: 
  Country: None (occurrence: None)
  Receive Date: 20081217
  Receipt Date: 20080226
  Transmission Date: 20090506
  Serious: No
  Sender: FDA-Public Use
  Company Number: US-ASTRAZENECA-2008UW04044

PATIENT
  Age: 72 Year
  Sex: Female
  Weight: 78.9 kg

DRUGS (10)
  1. CRESTOR [Suspect]
     Route: 048
     Dates: start: 20030101
  2. NIASPAN [Concomitant]
  3. RANITIDINE [Concomitant]
  4. OMEPRAZOLE [Concomitant]
  5. MOBIC [Concomitant]
  6. ACTONEL [Concomitant]
  7. ULTRACET [Concomitant]
  8. HYDROCHLOROTHIAZIDE [Concomitant]
  9. RESTASIS [Concomitant]
  10. SYNTHROID [Concomitant]

REACTIONS (3)
  - ARTHRITIS [None]
  - NODULE [None]
  - PAIN [None]
